FAERS Safety Report 7286607-5 (Version None)
Quarter: 2011Q1

REPORT INFORMATION
  Report Type: 
  Country: None (occurrence: None)
  Receive Date: 20110210
  Receipt Date: 20110208
  Transmission Date: 20110831
  Serious: No
  Sender: FDA-Public Use
  Company Number: US-PFIZER INC-2011028427

PATIENT
  Sex: Female
  Weight: 130 kg

DRUGS (12)
  1. NORVASC [Suspect]
     Indication: HYPERTENSION
     Dosage: 2.5 MG, 1X/DAY
     Route: 048
     Dates: start: 20101201
  2. METHOTREXATE [Concomitant]
     Dosage: 2.5 MG, WEEKLY
     Route: 048
  3. PRILOSEC [Concomitant]
     Dosage: 20 MG, 1X/DAY
     Route: 048
  4. ARTHROTEC [Concomitant]
     Dosage: 75/200 MCG 2X/DAY
     Route: 048
  5. ULTRAM [Concomitant]
     Dosage: UNK
     Route: 048
  6. MULTI-VITAMINS [Concomitant]
     Dosage: UNK
     Route: 048
  7. PREDNISONE [Concomitant]
     Dosage: 7.5 MG, 1X/DAY
     Route: 048
  8. SERAX [Concomitant]
     Dosage: 10 MG, 3X/DAY
     Route: 048
  9. HUMIRA [Concomitant]
     Dosage: 40 MG, EVERY 2 WEEKS
     Route: 048
  10. TOPROL-XL [Concomitant]
     Dosage: 50 MG, 1X/DAY
     Route: 048
  11. FOLIC ACID [Concomitant]
     Dosage: 1 MG, 1X/DAY
     Route: 048
  12. CALCIUM [Concomitant]
     Dosage: 500 MG, 1X/DAY
     Route: 048

REACTIONS (4)
  - URINARY INCONTINENCE [None]
  - DEHYDRATION [None]
  - ELECTROLYTE IMBALANCE [None]
  - NOCTURIA [None]
